FAERS Safety Report 8850908 (Version 2)
Quarter: 2012Q4

REPORT INFORMATION
  Report Type: 
  Country: US (occurrence: US)
  Receive Date: 20121019
  Receipt Date: 20121119
  Transmission Date: 20130627
  Serious: No
  Sender: FDA-Public Use
  Company Number: US-PFIZER INC-2012257116

PATIENT
  Age: 63 Year
  Sex: Female
  Weight: 59.86 kg

DRUGS (5)
  1. PREMPRO [Suspect]
     Indication: POSTMENOPAUSAL SYMPTOMS
     Dosage: [estrogens conjugated 0.45]/ [medroxyprogesterone acetate 1.5 mg], 1x/day
     Route: 048
     Dates: start: 2009, end: 2012
  2. PREMPRO [Suspect]
     Dosage: [estrogens conjugated 0.45]/ [medroxyprogesterone acetate 1.5 mg], alternate day
     Route: 048
     Dates: start: 2012
  3. TYLENOL [Concomitant]
     Indication: HEADACHE
     Dosage: UNK
  4. CRESTOR [Concomitant]
     Indication: HIGH CHOLESTEROL
     Dosage: UNK, alternate day
  5. CRESTOR [Concomitant]
     Indication: TRIGLYCERIDES HIGH

REACTIONS (5)
  - Product quality issue [Not Recovered/Not Resolved]
  - Dizziness [Not Recovered/Not Resolved]
  - Nausea [Not Recovered/Not Resolved]
  - Headache [Not Recovered/Not Resolved]
  - Nervousness [Not Recovered/Not Resolved]
